FAERS Safety Report 9034444 (Version 1)
Quarter: 2013Q1

REPORT INFORMATION
  Report Type: Spontaneous
  Country: DK (occurrence: None)
  Receive Date: 20130111
  Receipt Date: 20130111
  Transmission Date: 20140127
  Serious: Yes (Other)
  Sender: FDA-Public Use
  Company Number: 2013MA000164

PATIENT
  Age: 74 Year
  Sex: Male

DRUGS (11)
  1. DOXAZOSIN MESYLATE [Suspect]
     Dates: start: 20121122
  2. GLICLAZIDE [Concomitant]
  3. ATORVASTATIN [Concomitant]
  4. THIAMINE [Concomitant]
  5. VITAMIN B COMPLEX [Concomitant]
  6. AMLODIPINE [Concomitant]
  7. BENDROFLUMETHIAZIDE [Concomitant]
  8. CLOPIDOGREL [Concomitant]
  9. RAMIPRIL [Concomitant]
  10. CETRABEN EMOLLIENT CREAM [Concomitant]
  11. INFLUENZA VIRUS [Concomitant]

REACTIONS (2)
  - Cough [None]
  - Swelling face [None]
